FAERS Safety Report 6163844-4 (Version None)
Quarter: 2009Q2

REPORT INFORMATION
  Report Type: 
  Country: None (occurrence: None)
  Receive Date: 20090422
  Receipt Date: 20090414
  Transmission Date: 20091009
  Serious: Yes (Hospitalization)
  Sender: FDA-Public Use
  Company Number: US-JNJFOC-20090404274

PATIENT
  Sex: Male
  Weight: 37.2 kg

DRUGS (8)
  1. INFLIXIMAB [Suspect]
     Indication: CROHN'S DISEASE
     Route: 042
  2. 5-ASA [Concomitant]
     Route: 048
  3. HUMIRA [Concomitant]
  4. ANTIBIOTICS [Concomitant]
     Indication: INFLAMMATORY BOWEL DISEASE
  5. TYLENOL [Concomitant]
  6. MOTRIN [Concomitant]
  7. FERROUS SULFATE TAB [Concomitant]
  8. MULTI-VITAMIN [Concomitant]

REACTIONS (1)
  - CROHN'S DISEASE [None]
